FAERS Safety Report 7407370-0 (Version None)
Quarter: 2011Q2

REPORT INFORMATION
  Report Type: 
  Country: None (occurrence: None)
  Receive Date: 20110411
  Receipt Date: 20110405
  Transmission Date: 20111010
  Serious: Yes (Hospitalization, Other)
  Sender: FDA-Public Use
  Company Number: ES-ALLERGAN-1104859US

PATIENT
  Age: 76 Year
  Sex: Female

DRUGS (8)
  1. NEXIUM [Concomitant]
  2. ZETIA [Concomitant]
     Dosage: 10 MG, UNK
  3. SANCTURA XR [Suspect]
     Indication: HYPERTONIC BLADDER
     Dosage: 60 MG, QD
     Route: 048
     Dates: start: 20100801
  4. FLECAINIDE ACETATE [Concomitant]
     Dosage: 100 MG, UNK
  5. COUMADIN [Concomitant]
     Dosage: 10 MG, UNK
  6. LANOXIN [Concomitant]
     Dosage: 0.125 A?G, UNK
  7. CRESTOR [Concomitant]
     Dosage: 10 MG, UNK
  8. SYNTHROID [Concomitant]
     Dosage: 0.075 A?G, UNK

REACTIONS (2)
  - SMALL INTESTINAL OBSTRUCTION [None]
  - ANAEMIA [None]
